FAERS Safety Report 7573095-4 (Version None)
Quarter: 2011Q2

REPORT INFORMATION
  Report Type: 
  Country: None (occurrence: None)
  Receive Date: 20110620
  Receipt Date: 20110607
  Transmission Date: 20111010
  Serious: Yes (Death, Hospitalization)
  Sender: FDA-Public Use
  Company Number: PNIS20110002

PATIENT
  Age: 75 Year
  Sex: Male

DRUGS (5)
  1. SULFAMETOXAZOL/TRIMETOPRIM (SULFAMETHOXAZOLE/TRIMETHOPRIM) (SULFAMETHO [Concomitant]
  2. METHYLPREDNISOLONE 4MG TAB [Suspect]
     Indication: INTERSTITIAL LUNG DISEASE
     Dosage: 1 GM, 1 IN 1 D,
  3. METHYLPREDNISOLONE 4MG TAB [Suspect]
     Indication: ANTI-NEUTROPHIL CYTOPLASMIC ANTIBODY POSITIVE VASCULITIS
     Dosage: 1 GM, 1 IN 1 D,
  4. PREDNISOLONE [Suspect]
     Indication: INTERSTITIAL LUNG DISEASE
     Dosage: 40 MG, 1 IN 1 D; 35 MG, 1 IN 1 D; 30 MG, 1 IN 1 D; 25 MG, 1 IN 1 D; 20 MG, 1 IN 1 D
  5. PREDNISOLONE [Suspect]
     Indication: ANTI-NEUTROPHIL CYTOPLASMIC ANTIBODY POSITIVE VASCULITIS
     Dosage: 40 MG, 1 IN 1 D; 35 MG, 1 IN 1 D; 30 MG, 1 IN 1 D; 25 MG, 1 IN 1 D; 20 MG, 1 IN 1 D

REACTIONS (11)
  - RENAL FUNCTION TEST ABNORMAL [None]
  - MYCOBACTERIAL INFECTION [None]
  - CONDITION AGGRAVATED [None]
  - RESPIRATORY FAILURE [None]
  - PNEUMONIA BACTERIAL [None]
  - BACTERIAL TEST POSITIVE [None]
  - HYPOALBUMINAEMIA [None]
  - LUNG CONSOLIDATION [None]
  - LIVER FUNCTION TEST ABNORMAL [None]
  - INTERSTITIAL LUNG DISEASE [None]
  - ANAEMIA [None]
